FAERS Safety Report 4431120-3 (Version None)
Quarter: 2004Q3

REPORT INFORMATION
  Report Type: 
  Country: None (occurrence: None)
  Receive Date: 20040823
  Receipt Date: 20040813
  Transmission Date: 20050211
  Serious: No
  Sender: FDA-Public Use
  Company Number: 2004UW16188

PATIENT
  Age: 63 Year
  Sex: Male
  Weight: 84.369 kg

DRUGS (6)
  1. CRESTOR [Suspect]
     Indication: HYPERCHOLESTEROLAEMIA
     Dosage: 10 MG QD PO
     Route: 048
     Dates: start: 20040421, end: 20040723
  2. VICODIN [Concomitant]
  3. PHENERGAN HCL [Concomitant]
  4. PREVACID [Concomitant]
  5. ASPIRIN [Concomitant]
  6. SYNTHROID [Concomitant]

REACTIONS (1)
  - BLOOD CREATINE PHOSPHOKINASE INCREASED [None]
